FAERS Safety Report 5102617-8 (Version None)
Quarter: 2006Q3

REPORT INFORMATION
  Report Type: 
  Country: None (occurrence: None)
  Receive Date: 20060907
  Receipt Date: 20060821
  Transmission Date: 20061208
  Serious: Yes (Other)
  Sender: FDA-Public Use
  Company Number: VE200606003002

PATIENT
  Age: 10 Year
  Sex: Male
  Weight: 35 kg

DRUGS (2)
  1. STRATTERA [Suspect]
     Indication: ATTENTION DEFICIT/HYPERACTIVITY DISORDER
     Dosage: 18 MG, DAILY (1/D), ORAL
     Route: 048
     Dates: start: 20060201, end: 20060301
  2. VITAMINS NOS (VITAMINS NOS) [Concomitant]

REACTIONS (6)
  - FAMILY STRESS [None]
  - INJURY ASPHYXIATION [None]
  - INTENTIONAL SELF-INJURY [None]
  - NECK INJURY [None]
  - SUICIDE ATTEMPT [None]
  - THERMAL BURN [None]
